FAERS Safety Report 14305073 (Version 1)
Quarter: 2017Q4

REPORT INFORMATION
  Report Type: Report from Study
  Country: JP (occurrence: JP)
  Receive Date: 20171219
  Receipt Date: 20171219
  Transmission Date: 20180321
  Serious: Yes (Other)
  Sender: FDA-Public Use
  Company Number: JP-OTSUKA-000875

PATIENT
  Age: 65 Year
  Sex: Female
  Weight: 49.2 kg

DRUGS (14)
  1. SOLETON [Concomitant]
     Active Substance: ZALTOPROFEN
     Indication: BACK PAIN
     Dosage: 160 MG, QD
     Route: 048
     Dates: start: 20080218, end: 20080511
  2. ARIPIPRAZOLE. [Suspect]
     Active Substance: ARIPIPRAZOLE
     Indication: SCHIZOPHRENIA
     Dosage: 3 MG, BID
     Route: 048
     Dates: start: 20080414
  3. RISPERDAL [Concomitant]
     Active Substance: RISPERIDONE
     Indication: SCHIZOPHRENIA
     Dosage: 6 MG, QD
     Route: 048
  4. MAGNESIUM OXIDE. [Concomitant]
     Active Substance: MAGNESIUM OXIDE
     Indication: CONSTIPATION
     Dosage: 1.5 G, DAILY DOSE
     Route: 048
  5. RISPERDAL [Concomitant]
     Active Substance: RISPERIDONE
     Indication: PRODUCT USED FOR UNKNOWN INDICATION
     Dosage: UNK
     Route: 065
  6. SOLETON [Concomitant]
     Active Substance: ZALTOPROFEN
     Dosage: 160 MG, QD
     Route: 048
     Dates: start: 20081020, end: 20090104
  7. HIRNAMIN [Concomitant]
     Active Substance: PHENOTHIAZINE
     Indication: SCHIZOPHRENIA
     Dosage: 140 MG, QD
     Route: 048
  8. HIRNAMIN [Concomitant]
     Active Substance: PHENOTHIAZINE
     Dosage: 10 MG, QD
     Route: 048
     Dates: start: 20080901
  9. BICAMOL [Concomitant]
     Active Substance: BIPERIDEN HYDROCHLORIDE
     Indication: PRODUCT USED FOR UNKNOWN INDICATION
     Dosage: 6 MG, QD
     Route: 048
  10. PARKIN [Concomitant]
     Active Substance: ETHOPROPAZINE
     Indication: PRODUCT USED FOR UNKNOWN INDICATION
     Dosage: 150 MG, QD
     Route: 048
  11. MYONAL [Concomitant]
     Active Substance: EPERISONE HYDROCHLORIDE
     Indication: BACK PAIN
     Dosage: 100 MG, QD
     Route: 048
     Dates: start: 20080218, end: 20080511
  12. HIRNAMIN [Concomitant]
     Active Substance: PHENOTHIAZINE
     Dosage: 50 MG, QD
     Route: 048
     Dates: start: 20080424, end: 20080622
  13. HIRNAMIN [Concomitant]
     Active Substance: PHENOTHIAZINE
     Dosage: 20 MG, QD
     Route: 048
     Dates: start: 20080623, end: 20080831
  14. MYONAL [Concomitant]
     Active Substance: EPERISONE HYDROCHLORIDE
     Dosage: 100 MG, QD
     Route: 048
     Dates: start: 20081020, end: 20090104

REACTIONS (4)
  - Delusion [Recovering/Resolving]
  - Cellulitis [Recovered/Resolved]
  - Negativism [Recovering/Resolving]
  - Periodontitis [Recovered/Resolved]

NARRATIVE: CASE EVENT DATE: 20080424
